FAERS Safety Report 5288404-9 (Version None)
Quarter: 2007Q2

REPORT INFORMATION
  Report Type: 
  Country: None (occurrence: None)
  Receive Date: 20070405
  Receipt Date: 20070330
  Transmission Date: 20071010
  Serious: Yes (Death)
  Sender: FDA-Public Use
  Company Number: 2006UW21594

PATIENT
  Age: 34 Year
  Sex: Female
  Weight: 113.6 kg

DRUGS (3)
  1. SEROQUEL [Suspect]
     Indication: DEPRESSION
     Route: 048
     Dates: start: 19990101, end: 20031201
  2. RISPERDAL [Concomitant]
     Dates: start: 20030401
  3. ZYPREXA [Concomitant]
     Dates: start: 19990101, end: 20030101

REACTIONS (2)
  - DEATH [None]
  - DIABETES MELLITUS NON-INSULIN-DEPENDENT [None]
